FAERS Safety Report 5818875-8 (Version None)
Quarter: 2008Q3

REPORT INFORMATION
  Report Type: 
  Country: None (occurrence: None)
  Receive Date: 20080723
  Receipt Date: 20080714
  Transmission Date: 20090109
  Serious: Yes (Death, Hospitalization)
  Sender: FDA-Public Use
  Company Number: JP-AMGEN-US289062

PATIENT
  Sex: Male
  Weight: 57 kg

DRUGS (7)
  1. ENBREL [Suspect]
     Indication: PUSTULAR PSORIASIS
     Route: 058
     Dates: start: 20080327, end: 20080530
  2. PREDONINE [Concomitant]
     Indication: PUSTULAR PSORIASIS
     Route: 048
     Dates: start: 20071015, end: 20080601
  3. NOVORAPID [Concomitant]
     Indication: DIABETES MELLITUS
     Dosage: UNKNOWN
     Route: 058
     Dates: start: 20080125, end: 20080601
  4. NORVASC [Concomitant]
     Indication: HYPERTENSION
     Route: 048
     Dates: start: 20070807, end: 20080601
  5. TAKEPRON [Concomitant]
     Indication: REFLUX OESOPHAGITIS
     Route: 048
     Dates: start: 20071218, end: 20080601
  6. FOSAMAX [Concomitant]
     Indication: OSTEOPOROSIS
     Route: 048
     Dates: start: 20080310, end: 20080528
  7. ONE-ALPHA [Concomitant]
     Indication: OSTEOPOROSIS
     Route: 048
     Dates: start: 20071015, end: 20080601

REACTIONS (3)
  - CARDIAC FAILURE ACUTE [None]
  - CARDIO-RESPIRATORY ARREST [None]
  - MYOCARDIAL INFARCTION [None]
